FAERS Safety Report 11086580 (Version 1)
Quarter: 2015Q2

REPORT INFORMATION
  Report Type: Spontaneous
  Country: US (occurrence: None)
  Receive Date: 20150501
  Receipt Date: 20150501
  Transmission Date: 20150821
  Serious: No
  Sender: FDA-Public Use
  Company Number: None

PATIENT
  Age: 62 Year
  Sex: Female

DRUGS (1)
  1. TACROLIMUS. [Suspect]
     Active Substance: TACROLIMUS
     Indication: LIVER TRANSPLANT
     Route: 048
     Dates: start: 20150310, end: 20150322

REACTIONS (4)
  - Product quality issue [None]
  - Drug ineffective [None]
  - Product substitution issue [None]
  - Drug level decreased [None]

NARRATIVE: CASE EVENT DATE: 20150315
